FAERS Safety Report 4787290-0 (Version None)
Quarter: 2005Q3

REPORT INFORMATION
  Report Type: 
  Country: None (occurrence: None)
  Receive Date: 20050930
  Receipt Date: 20050921
  Transmission Date: 20060218
  Serious: Yes (Hospitalization, Other)
  Sender: FDA-Public Use
  Company Number: 2005-03561

PATIENT
  Age: 64 Year
  Sex: Male

DRUGS (1)
  1. FENTANYL CITRATE [Suspect]
     Indication: SCIATICA
     Dosage: 200 UG/H

REACTIONS (1)
  - SECONDARY ADRENOCORTICAL INSUFFICIENCY [None]
